FAERS Safety Report 24040504 (Version 1)
Quarter: 2024Q3

REPORT INFORMATION
  Report Type: Spontaneous
  Country: US (occurrence: US)
  Receive Date: 20240702
  Receipt Date: 20240702
  Transmission Date: 20241016
  Serious: Yes (Hospitalization, Other)
  Sender: HIKMA
  Company Number: US-MLMSERVICE-20240613-PI092581-00089-5

PATIENT
  Age: 69 Year
  Sex: Male

DRUGS (1)
  1. CEFTRIAXONE [Suspect]
     Active Substance: CEFTRIAXONE\CEFTRIAXONE SODIUM
     Indication: Product used for unknown indication
     Dosage: UNKNOWN
     Route: 065

REACTIONS (5)
  - Liver injury [Recovering/Resolving]
  - Eosinophilia [Recovering/Resolving]
  - Symmetrical drug-related intertriginous and flexural exanthema [Recovering/Resolving]
  - Leukocytosis [Recovering/Resolving]
  - Acute kidney injury [Recovering/Resolving]
